FAERS Safety Report 15580644 (Version 11)
Quarter: 2019Q4

REPORT INFORMATION
  Report Type: Spontaneous
  Country: JP (occurrence: JP)
  Receive Date: 20181102
  Receipt Date: 20191122
  Transmission Date: 20200122
  Serious: Yes (Hospitalization)
  Sender: FDA-Public Use
  Company Number: JP-ASTRAZENECA-2018SF40188

PATIENT
  Age: 24555 Day
  Sex: Male
  Weight: 62 kg

DRUGS (2)
  1. IMFINZI [Suspect]
     Active Substance: DURVALUMAB
     Indication: NON-SMALL CELL LUNG CANCER
     Route: 042
  2. IMFINZI [Suspect]
     Active Substance: DURVALUMAB
     Indication: NON-SMALL CELL LUNG CANCER
     Route: 042
     Dates: start: 20180913, end: 20181011

REACTIONS (7)
  - Rash [Unknown]
  - Drug eruption [Recovering/Resolving]
  - Hypothyroidism [Not Recovered/Not Resolved]
  - Radiation pneumonitis [Recovering/Resolving]
  - Lichenoid keratosis [Recovering/Resolving]
  - Hyperthyroidism [Recovering/Resolving]
  - C-reactive protein increased [Unknown]

NARRATIVE: CASE EVENT DATE: 20181017
